FAERS Safety Report 25786613 (Version 1)
Quarter: 2025Q3

REPORT INFORMATION
  Report Type: Spontaneous
  Country: US (occurrence: US)
  Receive Date: 20250910
  Receipt Date: 20250910
  Transmission Date: 20251021
  Serious: Yes (Hospitalization)
  Sender: RECKITT BENCKISER
  Company Number: US-Indivior Limited- INDV-176441-2025

PATIENT

DRUGS (2)
  1. SUBLOCADE [Suspect]
     Active Substance: BUPRENORPHINE
     Indication: Drug dependence
     Route: 065
  2. SUBLOCADE [Suspect]
     Active Substance: BUPRENORPHINE

REACTIONS (3)
  - COVID-19 pneumonia [Unknown]
  - Injection site pain [Unknown]
  - Injection site swelling [Unknown]
